FAERS Safety Report 4887673-4 (Version None)
Quarter: 2006Q1

REPORT INFORMATION
  Report Type: 
  Country: None (occurrence: None)
  Receive Date: 20060119
  Receipt Date: 20060119
  Transmission Date: 20060701
  Serious: Yes (Hospitalization, Other)
  Sender: FDA-Public Use
  Company Number: None

PATIENT
  Age: 82 Year
  Sex: Male
  Weight: 79.2 kg

DRUGS (3)
  1. ASPIRIN [Suspect]
     Indication: PROPHYLAXIS
     Dosage: 325 MG PO DAILY
     Route: 048
     Dates: start: 19951130, end: 20051207
  2. ETODOLAC [Suspect]
     Indication: INFLAMMATION
     Dosage: 300 MG PO TWICE A DAY
     Route: 048
     Dates: start: 20041119, end: 20051207
  3. ETODOLAC [Suspect]
     Indication: PAIN
     Dosage: 300 MG PO TWICE A DAY
     Route: 048
     Dates: start: 20041119, end: 20051207

REACTIONS (4)
  - DIARRHOEA [None]
  - MELAENA [None]
  - OCCULT BLOOD POSITIVE [None]
  - RECTAL HAEMORRHAGE [None]
